FAERS Safety Report 7332906-8 (Version None)
Quarter: 2011Q1

REPORT INFORMATION
  Report Type: 
  Country: None (occurrence: None)
  Receive Date: 20110304
  Receipt Date: 20110225
  Transmission Date: 20110831
  Serious: Yes (Other)
  Sender: FDA-Public Use
  Company Number: PHHY2010BR50353

PATIENT
  Sex: Female
  Weight: 81 kg

DRUGS (1)
  1. DIOVAN [Suspect]
     Indication: HYPERTENSION
     Dosage: 1 DF, QD
     Route: 048

REACTIONS (4)
  - VISION BLURRED [None]
  - SOMNOLENCE [None]
  - DIABETES MELLITUS [None]
  - NOCTURIA [None]
